FAERS Safety Report 11453244 (Version 2)
Quarter: 2015Q4

REPORT INFORMATION
  Report Type: Spontaneous
  Country: US (occurrence: US)
  Receive Date: 20150903
  Receipt Date: 20151023
  Transmission Date: 20160304
  Serious: No
  Sender: FDA-Public Use
  Company Number: US-PFIZER INC-2015281351

PATIENT
  Age: 34 Year
  Sex: Female

DRUGS (1)
  1. IBRANCE [Suspect]
     Active Substance: PALBOCICLIB
     Dosage: 125 MG, CYCLIC, (A DAY X 21 DAYS)
     Dates: start: 20150811

REACTIONS (2)
  - White blood cell count decreased [Unknown]
  - Fatigue [Unknown]
